FAERS Safety Report 12953439 (Version 3)
Quarter: 2016Q4

REPORT INFORMATION
  Report Type: Spontaneous
  Country: JP (occurrence: JP)
  Receive Date: 20161117
  Receipt Date: 20161213
  Transmission Date: 20170207
  Serious: Yes (Other)
  Sender: FDA-Public Use
  Company Number: JP-ABBVIE-16P-087-1773681-00

PATIENT
  Age: 82 Year
  Sex: Female
  Weight: 42.4 kg

DRUGS (35)
  1. RALOXIFENE HYDROCHLORIDE. [Concomitant]
     Active Substance: RALOXIFENE HYDROCHLORIDE
     Indication: OSTEOPOROSIS
     Route: 048
     Dates: start: 20161001
  2. CROTAMITON [Concomitant]
     Active Substance: CROTAMITON
     Route: 061
     Dates: start: 20161101
  3. MIGLITOL. [Concomitant]
     Active Substance: MIGLITOL
     Indication: DIABETES MELLITUS
     Route: 048
     Dates: start: 20161001
  4. LANSOPRAZOLE. [Concomitant]
     Active Substance: LANSOPRAZOLE
     Indication: GASTROOESOPHAGEAL REFLUX DISEASE
     Route: 048
     Dates: start: 20161001, end: 20161121
  5. ETIZOLAM [Concomitant]
     Active Substance: ETIZOLAM
     Indication: BACK PAIN
     Route: 048
     Dates: start: 20161001, end: 20161003
  6. STRONGER NEO MINOPHAGEN C, -P [Concomitant]
     Indication: CHRONIC HEPATITIS
     Dates: start: 20161003
  7. MALTOSE/LACTATED RINGER^S SOLUTION [Concomitant]
     Indication: DEHYDRATION
     Dates: start: 20161101
  8. ALDACTONE-A [Suspect]
     Active Substance: SPIRONOLACTONE
     Indication: OEDEMA
     Route: 048
     Dates: start: 20161001, end: 20161107
  9. CROTAMITON [Concomitant]
     Active Substance: CROTAMITON
     Route: 061
     Dates: start: 20161025
  10. KETOPROFEN. [Concomitant]
     Active Substance: KETOPROFEN
     Route: 062
     Dates: start: 20161014
  11. STRONGER NEO MINOPHAGEN C, -P [Concomitant]
     Dates: start: 20161012
  12. METHYLDOPA HYDRATE [Concomitant]
     Active Substance: METHYLDOPA
     Indication: HYPERTENSION
     Route: 048
     Dates: start: 20161001, end: 20161121
  13. TSUKUSHI AM [Concomitant]
     Indication: ABDOMINAL DISCOMFORT
     Route: 048
     Dates: start: 20161001, end: 20161114
  14. FUROSEMIDE. [Concomitant]
     Active Substance: FUROSEMIDE
     Indication: HYPERTENSION
     Route: 048
     Dates: start: 20161001, end: 20161121
  15. KETOPROFEN. [Concomitant]
     Active Substance: KETOPROFEN
     Indication: BACK PAIN
     Route: 062
     Dates: start: 20161003
  16. KETOPROFEN. [Concomitant]
     Active Substance: KETOPROFEN
     Route: 062
     Dates: start: 20161111
  17. STRONGER NEO MINOPHAGEN C, -P [Concomitant]
     Dates: start: 20161005
  18. STRONGER NEO MINOPHAGEN C, -P [Concomitant]
     Dates: start: 20161007
  19. STRONGER NEO MINOPHAGEN C, -P [Concomitant]
     Dates: start: 20161010
  20. SENNA EXTRACT [Concomitant]
     Indication: CONSTIPATION
     Route: 048
     Dates: start: 20161001, end: 20161121
  21. SHAKUYAKUKANZOTO [Concomitant]
     Active Substance: HERBALS
     Indication: BACK PAIN
     Route: 048
     Dates: start: 20161001, end: 20161121
  22. CROTAMITON [Concomitant]
     Active Substance: CROTAMITON
     Indication: PRURITUS
     Route: 061
     Dates: start: 20161011
  23. CROTAMITON [Concomitant]
     Active Substance: CROTAMITON
     Route: 061
     Dates: start: 20161115
  24. INSULIN HUMAN [Concomitant]
     Active Substance: INSULIN HUMAN
     Indication: DIABETES MELLITUS
     Route: 050
     Dates: start: 20161101
  25. OLMESARTAN MEDOXOMIL. [Concomitant]
     Active Substance: OLMESARTAN MEDOXOMIL
     Indication: HYPERTENSION
     Route: 048
     Dates: start: 20161001, end: 20161121
  26. GOSHAJINKIGAN [Concomitant]
     Active Substance: HERBALS
     Indication: BACK PAIN
     Route: 048
     Dates: start: 20161003
  27. CELECOXIB. [Concomitant]
     Active Substance: CELECOXIB
     Indication: BACK PAIN
     Route: 048
     Dates: start: 20161001
  28. LIMAPROST ALFADEX [Concomitant]
     Active Substance: LIMAPROST
     Indication: PAIN
     Route: 048
     Dates: start: 20161003
  29. INSULIN HUMAN [Concomitant]
     Active Substance: INSULIN HUMAN
     Route: 050
     Dates: start: 20161115
  30. VIEKIRAX [Suspect]
     Active Substance: OMBITASVIR\PARITAPREVIR\RITONAVIR
     Indication: CHRONIC HEPATITIS C
     Route: 048
     Dates: start: 20161005
  31. ANTIBIOTICS-RESISTANT LACTIC ACID BACTERIAE [Concomitant]
     Active Substance: UNSPECIFIED INGREDIENT
     Indication: GASTROINTESTINAL DISORDER
     Route: 048
     Dates: start: 20161025, end: 20161121
  32. CROTAMITON [Concomitant]
     Active Substance: CROTAMITON
     Dates: start: 20161108
  33. FUROSEMIDE. [Concomitant]
     Active Substance: FUROSEMIDE
     Indication: OEDEMA
  34. KETOPROFEN. [Concomitant]
     Active Substance: KETOPROFEN
     Route: 062
     Dates: start: 20161011
  35. STRONGER NEO MINOPHAGEN C, -P [Concomitant]
     Dates: start: 20161014

REACTIONS (3)
  - Nasopharyngitis [Unknown]
  - Pruritus [Recovering/Resolving]
  - Hyperkalaemia [Not Recovered/Not Resolved]

NARRATIVE: CASE EVENT DATE: 20161011
